FAERS Safety Report 8187575 (Version 4)
Quarter: 2015Q1

REPORT INFORMATION
  Report Type: Spontaneous
  Country: US (occurrence: US)
  Receive Date: 20111018
  Receipt Date: 20150227
  Transmission Date: 20150721
  Serious: Yes (Other)
  Sender: FDA-Public Use
  Company Number: US-ASTRAZENECA-2010SE46013

PATIENT
  Age: 77 Year
  Sex: Female
  Weight: 77.1 kg

DRUGS (12)
  1. LEVOTHYROXINE [Concomitant]
     Active Substance: LEVOTHYROXINE
     Indication: THYROID DISORDER
     Dates: start: 2007
  2. PRIMIDONE. [Concomitant]
     Active Substance: PRIMIDONE
     Indication: TREMOR
  3. UNSPECIFIED METOPROLOL [Suspect]
     Active Substance: METOPROLOL
     Route: 048
  4. CITALOPRAM [Concomitant]
     Active Substance: CITALOPRAM HYDROBROMIDE
     Indication: ANXIETY
  5. OXYGEN. [Concomitant]
     Active Substance: OXYGEN
  6. LEVOTHYROXINE [Concomitant]
     Active Substance: LEVOTHYROXINE
     Indication: THYROID DISORDER
     Dosage: 50 MCG
  7. LEVOTHYROXINE [Concomitant]
     Active Substance: LEVOTHYROXINE
     Indication: THYROID DISORDER
     Dosage: 88 MCG
  8. COMBIVENT [Concomitant]
     Active Substance: ALBUTEROL SULFATE\IPRATROPIUM BROMIDE
     Indication: CHRONIC OBSTRUCTIVE PULMONARY DISEASE
  9. METOPROLOL TARTRATE. [Concomitant]
     Active Substance: METOPROLOL TARTRATE
     Indication: ATRIAL FIBRILLATION
  10. ALPRAXOLAM [Concomitant]
     Indication: SLEEP DISORDER
     Dosage: 0.5 MG
  11. SYMBICORT [Suspect]
     Active Substance: BUDESONIDE\FORMOTEROL FUMARATE DIHYDRATE
     Indication: CHRONIC OBSTRUCTIVE PULMONARY DISEASE
     Dosage: UNKNOWN DOSE, TWO TIMES A DAY
     Route: 055
  12. UNSPECIFIED NEBULIZER [Concomitant]
     Active Substance: UNSPECIFIED INGREDIENT

REACTIONS (14)
  - Vertigo [Unknown]
  - Intentional product misuse [Unknown]
  - Sinusitis [Unknown]
  - Neuropathy peripheral [Unknown]
  - Bronchopneumonia [Recovered/Resolved]
  - Asthenia [Unknown]
  - Bronchitis [Unknown]
  - Drug dose omission [Unknown]
  - Dysgraphia [Unknown]
  - Malaise [Unknown]
  - Body height decreased [Unknown]
  - Dyspnoea [Unknown]
  - Chronic obstructive pulmonary disease [Unknown]
  - Tremor [Unknown]

NARRATIVE: CASE EVENT DATE: 2007
